FAERS Safety Report 8851779 (Version 1)
Quarter: 2012Q4

REPORT INFORMATION
  Report Type: Spontaneous
  Country: US (occurrence: None)
  Receive Date: 20121018
  Receipt Date: 20121018
  Transmission Date: 20130627
  Serious: Yes (Hospitalization)
  Sender: FDA-Public Use
  Company Number: None

PATIENT
  Age: 46 Year
  Sex: Female
  Weight: 80.74 kg

DRUGS (1)
  1. LEVOFLOXACIN [Suspect]
     Indication: UTI
     Route: 048
     Dates: start: 20120920, end: 20120920

REACTIONS (8)
  - Swelling face [None]
  - Eye swelling [None]
  - Lip swelling [None]
  - Erythema [None]
  - Pharyngeal oedema [None]
  - Local swelling [None]
  - Urticaria [None]
  - Dyspnoea [None]
